FAERS Safety Report 4673254-4 (Version None)
Quarter: 2005Q2

REPORT INFORMATION
  Report Type: 
  Country: None (occurrence: None)
  Receive Date: 20050525
  Receipt Date: 20050310
  Transmission Date: 20051028
  Serious: Yes (Disabling)
  Sender: FDA-Public Use
  Company Number: 200510782JP

PATIENT
  Age: 35 Year
  Sex: Female
  Weight: 43.9 kg

DRUGS (5)
  1. LASIX [Suspect]
  2. ONE-ALPHA [Concomitant]
     Route: 048
  3. SLOW-K [Concomitant]
     Route: 048
  4. BENECID [Concomitant]
     Route: 048
  5. URINORM [Concomitant]
     Route: 048

REACTIONS (8)
  - ANTINUCLEAR ANTIBODY POSITIVE [None]
  - HYPERURICAEMIA [None]
  - HYPOKALAEMIA [None]
  - HYPONATRAEMIA [None]
  - METABOLIC ALKALOSIS [None]
  - PSEUDO-BARTTER SYNDROME [None]
  - RENAL IMPAIRMENT [None]
  - RENAL TUBULAR DISORDER [None]
